FAERS Safety Report 24163403 (Version 1)
Quarter: 2024Q3

REPORT INFORMATION
  Report Type: Spontaneous
  Country: US (occurrence: US)
  Receive Date: 20240801
  Receipt Date: 20240801
  Transmission Date: 20241016
  Serious: No
  Sender: VERTEX
  Company Number: US-VERTEX PHARMACEUTICALS-2024-012404

PATIENT
  Age: 60 Year
  Sex: Female

DRUGS (43)
  1. TRIKAFTA [Suspect]
     Active Substance: ELEXACAFTOR\IVACAFTOR\TEZACAFTOR
     Indication: Cystic fibrosis
     Dosage: UNKNOWN DOSAGE REGIMEN
     Route: 048
  2. AZTREONAM LYSINE [Suspect]
     Active Substance: AZTREONAM LYSINE
     Indication: Cystic fibrosis lung
     Dosage: 1 ML (75 MG), 28 DAYS OFF AND ON
     Dates: start: 20150421
  3. TOBRAMYCIN [Suspect]
     Active Substance: TOBRAMYCIN\TOBRAMYCIN SULFATE
     Indication: Product used for unknown indication
     Route: 065
  4. CREON [Suspect]
     Active Substance: PANCRELIPASE AMYLASE\PANCRELIPASE LIPASE\PANCRELIPASE PROTEASE
     Indication: Product used for unknown indication
     Route: 065
  5. URSODIOL [Concomitant]
     Active Substance: URSODIOL
  6. TRAMADOL [Concomitant]
     Active Substance: TRAMADOL\TRAMADOL HYDROCHLORIDE
  7. MUCINEX [Concomitant]
     Active Substance: GUAIFENESIN
  8. CALCIUM [Concomitant]
     Active Substance: CALCIUM
  9. LORATADINE [Concomitant]
     Active Substance: LORATADINE
  10. ZOLOFT [Concomitant]
     Active Substance: SERTRALINE HYDROCHLORIDE
  11. LEVALBUTEROL HYDROCHLORIDE [Concomitant]
     Active Substance: LEVALBUTEROL HYDROCHLORIDE
  12. PANTOPRAZOLE [Concomitant]
     Active Substance: PANTOPRAZOLE
  13. BENTYL [Concomitant]
     Active Substance: DICYCLOMINE HYDROCHLORIDE
  14. CIMETIDINE [Concomitant]
     Active Substance: CIMETIDINE
  15. CLARITIN [Concomitant]
     Active Substance: LORATADINE
  16. SODIUM CHLORITE [Concomitant]
     Active Substance: SODIUM CHLORITE
  17. OXYCODONE AND ACETAMINOPHEN [Concomitant]
     Active Substance: ACETAMINOPHEN\OXYCODONE HYDROCHLORIDE
  18. SEROQUEL [Concomitant]
     Active Substance: QUETIAPINE FUMARATE
  19. BENZONATATE [Concomitant]
     Active Substance: BENZONATATE
  20. METAXALONE [Concomitant]
     Active Substance: METAXALONE
  21. SERTRALINE [Concomitant]
     Active Substance: SERTRALINE HYDROCHLORIDE
  22. PROCHLORPERAZINE [Concomitant]
     Active Substance: PROCHLORPERAZINE
  23. SALINE [Concomitant]
     Active Substance: SODIUM CHLORIDE
  24. TOPAMAX [Concomitant]
     Active Substance: TOPIRAMATE
  25. LEVAQUIN [Concomitant]
     Active Substance: LEVOFLOXACIN
  26. ACETAMINOPHEN\CODEINE PHOSPHATE [Concomitant]
     Active Substance: ACETAMINOPHEN\CODEINE PHOSPHATE
  27. XIFAXAN [Concomitant]
     Active Substance: RIFAXIMIN
  28. MELATONIN [Concomitant]
     Active Substance: MELATONIN
  29. CARAFATE [Concomitant]
     Active Substance: SUCRALFATE
  30. PANCREAZE [Concomitant]
     Active Substance: PANCRELIPASE AMYLASE\PANCRELIPASE LIPASE\PANCRELIPASE PROTEASE
  31. CYCLOBENZAPRINE [Concomitant]
     Active Substance: CYCLOBENZAPRINE
  32. ELIQUIS [Concomitant]
     Active Substance: APIXABAN
  33. FAMOTIDINE [Concomitant]
     Active Substance: FAMOTIDINE
  34. ADVAIR HFA [Concomitant]
     Active Substance: FLUTICASONE PROPIONATE\SALMETEROL XINAFOATE
  35. GUAIFENESIN [Concomitant]
     Active Substance: GUAIFENESIN
  36. FLONASE [Concomitant]
     Active Substance: FLUTICASONE PROPIONATE
  37. PROMETHAZINE [Concomitant]
     Active Substance: PROMETHAZINE HYDROCHLORIDE
  38. PERCOCET [Concomitant]
     Active Substance: ACETAMINOPHEN\OXYCODONE HYDROCHLORIDE
  39. PREDNISONE [Concomitant]
     Active Substance: PREDNISONE
  40. CRESEMBA [Concomitant]
     Active Substance: ISAVUCONAZONIUM SULFATE
  41. AZITHROMYCIN [Concomitant]
     Active Substance: AZITHROMYCIN
  42. PULMOZYME [Concomitant]
     Active Substance: DORNASE ALFA
  43. VITAMIN D3 [Concomitant]
     Active Substance: CHOLECALCIFEROL

REACTIONS (2)
  - Vomiting [Unknown]
  - Diarrhoea [Unknown]
